FAERS Safety Report 13950414 (Version 2)
Quarter: 2017Q4

REPORT INFORMATION
  Report Type: Report from Study
  Country: FR (occurrence: FR)
  Receive Date: 20170908
  Receipt Date: 20171004
  Transmission Date: 20180320
  Serious: Yes (Death, Hospitalization, Other)
  Sender: FDA-Public Use
  Company Number: FR-BRISTOL-MYERS SQUIBB COMPANY-BMS-2017-079187

PATIENT
  Age: 58 Year
  Sex: Male
  Weight: 46 kg

DRUGS (1)
  1. DASATINIB. [Suspect]
     Active Substance: DASATINIB
     Indication: CHRONIC MYELOID LEUKAEMIA
     Dosage: 100 MG, UNK
     Route: 065
     Dates: start: 20140324, end: 20141006

REACTIONS (8)
  - Diarrhoea [Unknown]
  - Graft versus host disease in lung [Unknown]
  - Lung disorder [Fatal]
  - General physical health deterioration [Unknown]
  - Cytomegalovirus infection [Unknown]
  - Graft versus host disease in skin [Unknown]
  - Graft versus host disease in gastrointestinal tract [Fatal]
  - Aspergillus infection [Unknown]

NARRATIVE: CASE EVENT DATE: 20160216
